FAERS Safety Report 15498494 (Version 2)
Quarter: 2019Q1

REPORT INFORMATION
  Report Type: Spontaneous
  Country: FR (occurrence: FR)
  Receive Date: 20181015
  Receipt Date: 20190306
  Transmission Date: 20190417
  Serious: Yes (Hospitalization, Other)
  Sender: FDA-Public Use
  Company Number: PHHY2018FR121998

PATIENT
  Age: 85 Year
  Sex: Male
  Weight: 85 kg

DRUGS (36)
  1. SODIUM OXYBATE. [Suspect]
     Active Substance: SODIUM OXYBATE
     Indication: NARCOLEPSY
     Dosage: UNK
     Route: 048
     Dates: start: 20101118, end: 20111211
  2. SODIUM OXYBATE. [Suspect]
     Active Substance: SODIUM OXYBATE
     Dosage: UNK
     Route: 048
     Dates: start: 201009, end: 201010
  3. SODIUM OXYBATE. [Suspect]
     Active Substance: SODIUM OXYBATE
     Dosage: NIGHTLY
     Route: 048
     Dates: start: 20111212, end: 20111222
  4. SODIUM OXYBATE. [Suspect]
     Active Substance: SODIUM OXYBATE
     Dosage: TWICE NIGHTLY
     Route: 048
     Dates: start: 20100503, end: 20100511
  5. SODIUM OXYBATE. [Suspect]
     Active Substance: SODIUM OXYBATE
     Dosage: UNK
     Route: 048
     Dates: start: 201009, end: 201010
  6. SODIUM OXYBATE. [Suspect]
     Active Substance: SODIUM OXYBATE
     Dosage: TWICE NIGHTLY
     Route: 048
     Dates: start: 20100415, end: 20100417
  7. SODIUM OXYBATE. [Suspect]
     Active Substance: SODIUM OXYBATE
     Dosage: 9 G, (TWICE NIGHTLY)
     Route: 048
     Dates: start: 20100418, end: 20100428
  8. SODIUM OXYBATE. [Suspect]
     Active Substance: SODIUM OXYBATE
     Dosage: 4.5 G, UNK
     Route: 048
     Dates: start: 20090807, end: 20100101
  9. ABILIFY [Concomitant]
     Active Substance: ARIPIPRAZOLE
  10. SODIUM OXYBATE. [Suspect]
     Active Substance: SODIUM OXYBATE
     Dosage: 7 G, QHS(NIGHTLY)
     Route: 048
     Dates: start: 20111212, end: 20111222
  11. SODIUM OXYBATE. [Suspect]
     Active Substance: SODIUM OXYBATE
     Dosage: 4.5 G, UNK
     Route: 048
     Dates: start: 20090807, end: 20100101
  12. SODIUM OXYBATE. [Suspect]
     Active Substance: SODIUM OXYBATE
     Dosage: 5 G, UNK
     Route: 048
     Dates: start: 20100102
  13. SODIUM OXYBATE. [Suspect]
     Active Substance: SODIUM OXYBATE
     Dosage: TWICE NIGHTLY
     Route: 048
     Dates: start: 20100418, end: 20100428
  14. XYREM [Suspect]
     Active Substance: SODIUM OXYBATE
     Indication: CATAPLEXY
     Dosage: 6.5 G (TWICE NIGHTLY)
     Route: 048
     Dates: start: 20100429, end: 20100502
  15. SODIUM OXYBATE. [Suspect]
     Active Substance: SODIUM OXYBATE
     Dosage: 4.5 + 3.5 G, TWICE
     Route: 048
     Dates: start: 20110423
  16. SODIUM OXYBATE. [Suspect]
     Active Substance: SODIUM OXYBATE
     Dosage: 5 G, UNK
     Route: 048
     Dates: start: 20100102
  17. SODIUM OXYBATE. [Suspect]
     Active Substance: SODIUM OXYBATE
     Dosage: TWICE NIGHTLY
     Route: 048
     Dates: start: 20090807, end: 20100101
  18. XYREM [Suspect]
     Active Substance: SODIUM OXYBATE
     Dosage: UNK
     Route: 048
     Dates: start: 20101118, end: 20111211
  19. ABILIFY [Concomitant]
     Active Substance: ARIPIPRAZOLE
     Indication: PRODUCT USED FOR UNKNOWN INDICATION
     Route: 065
  20. SODIUM OXYBATE. [Suspect]
     Active Substance: SODIUM OXYBATE
     Indication: CATAPLEXY
     Dosage: 6.5 G, (TWICE NIGHTLY)
     Route: 048
     Dates: start: 20100415, end: 20100417
  21. SODIUM OXYBATE. [Suspect]
     Active Substance: SODIUM OXYBATE
     Dosage: TWICE NIGHTLY
     Route: 048
     Dates: start: 20100102
  22. XYREM [Suspect]
     Active Substance: SODIUM OXYBATE
     Indication: NARCOLEPSY
     Dosage: 3.5 G, BID (TWICE NIGHTLY)
     Route: 048
     Dates: start: 20100511, end: 20100607
  23. RISPERDAL [Concomitant]
     Active Substance: RISPERIDONE
     Indication: PRODUCT USED FOR UNKNOWN INDICATION
     Route: 065
  24. SODIUM OXYBATE. [Suspect]
     Active Substance: SODIUM OXYBATE
     Dosage: (3.75 + 3.50) G NIGHTLY
     Route: 048
  25. SODIUM OXYBATE. [Suspect]
     Active Substance: SODIUM OXYBATE
     Dosage: 9 G, (TWICE NIGHTLY)
     Route: 048
     Dates: start: 20111229
  26. SODIUM OXYBATE. [Suspect]
     Active Substance: SODIUM OXYBATE
     Dosage: 6 G, UNK
     Route: 048
     Dates: start: 20100418, end: 20180428
  27. SODIUM OXYBATE. [Suspect]
     Active Substance: SODIUM OXYBATE
     Dosage: 4.5 GRAMS + 3.5 GRAM TWICE NIGHTLY
     Route: 048
     Dates: start: 20111223
  28. CONCERTA [Concomitant]
     Active Substance: METHYLPHENIDATE HYDROCHLORIDE
     Indication: PRODUCT USED FOR UNKNOWN INDICATION
     Dosage: UNK
     Route: 048
  29. MODIODAL [Concomitant]
     Active Substance: MODAFINIL
     Dosage: TABLET
     Dates: start: 200907
  30. RITALINE [Suspect]
     Active Substance: METHYLPHENIDATE HYDROCHLORIDE
     Indication: PRODUCT USED FOR UNKNOWN INDICATION
     Dosage: UNK
     Route: 048
  31. SODIUM OXYBATE. [Suspect]
     Active Substance: SODIUM OXYBATE
     Dosage: 7 G, UNK
     Route: 048
     Dates: start: 20100503, end: 20100511
  32. SODIUM OXYBATE. [Suspect]
     Active Substance: SODIUM OXYBATE
     Dosage: 3.75 + 3.50 G NIGHTLY
     Route: 048
  33. SODIUM OXYBATE. [Suspect]
     Active Substance: SODIUM OXYBATE
     Dosage: TWICE NIGHTLY
     Route: 048
     Dates: start: 20100415, end: 20100417
  34. SODIUM OXYBATE. [Suspect]
     Active Substance: SODIUM OXYBATE
     Dosage: TWICE NIGHTLY
     Route: 048
     Dates: start: 20111229
  35. CANNABIS SATIVA [Suspect]
     Active Substance: CANNABIS SATIVA SUBSP. SATIVA FLOWERING TOP
     Indication: PRODUCT USED FOR UNKNOWN INDICATION
     Dosage: UNK
     Route: 065
  36. MODIODAL [Concomitant]
     Active Substance: MODAFINIL
     Indication: NARCOLEPSY
     Dosage: 3 OT, UNK
     Route: 065
     Dates: start: 200907

REACTIONS (12)
  - Delirium [Recovered/Resolved]
  - Anxiety [Recovered/Resolved]
  - Thinking abnormal [Unknown]
  - Psychotic disorder [Recovered/Resolved]
  - Hallucination, auditory [Unknown]
  - Nervousness [Recovered/Resolved]
  - Anxiety disorder [Recovered/Resolved]
  - Mental impairment [Unknown]
  - Palpitations [Recovered/Resolved]
  - Stress [Unknown]
  - Delusion [Recovered/Resolved]
  - Suicidal ideation [Unknown]

NARRATIVE: CASE EVENT DATE: 2010
